FAERS Safety Report 24410557 (Version 1)
Quarter: 2024Q4

REPORT INFORMATION
  Report Type: Report from Study
  Country: US (occurrence: US)
  Receive Date: 20241008
  Receipt Date: 20241008
  Transmission Date: 20250115
  Serious: Yes (Other)
  Sender: ABBVIE
  Company Number: US-ABBVIE-5949012

PATIENT
  Age: 37 Year
  Sex: Female

DRUGS (1)
  1. SKYRIZI [Suspect]
     Active Substance: RISANKIZUMAB-RZAA
     Indication: Product used for unknown indication
     Route: 058
     Dates: start: 20200501, end: 202402

REACTIONS (5)
  - Impaired healing [Recovered/Resolved]
  - Psoriasis [Not Recovered/Not Resolved]
  - Abdominoplasty [Recovered/Resolved]
  - Blood disorder [Unknown]
  - Mammoplasty [Recovered/Resolved]

NARRATIVE: CASE EVENT DATE: 20241001
